FAERS Safety Report 4277399-2 (Version None)
Quarter: 2004Q1

REPORT INFORMATION
  Report Type: 
  Country: None (occurrence: None)
  Receive Date: 20040122
  Receipt Date: 20021205
  Transmission Date: 20041129
  Serious: Yes (Hospitalization)
  Sender: FDA-Public Use
  Company Number: US-GLAXOSMITHKLINE-A0388400A

PATIENT
  Age: 73 Year
  Sex: Male

DRUGS (3)
  1. TOPOTECAN [Suspect]
     Indication: NON-HODGKIN'S LYMPHOMA
     Route: 042
     Dates: start: 20021029, end: 20021029
  2. TOPOTECAN [Suspect]
     Route: 048
     Dates: start: 20021030, end: 20021031
  3. TAXOL [Suspect]
     Indication: NON-HODGKIN'S LYMPHOMA
     Route: 042
     Dates: start: 20021029, end: 20021029

REACTIONS (3)
  - ASTHENIA [None]
  - FALL [None]
  - PANCYTOPENIA [None]
